FAERS Safety Report 16970548 (Version 1)
Quarter: 2019Q4

REPORT INFORMATION
  Report Type: Spontaneous
  Country: US (occurrence: US)
  Receive Date: 20191029
  Receipt Date: 20191029
  Transmission Date: 20200122
  Serious: No
  Sender: FDA-Public Use
  Company Number: US-PFIZER INC-2019466924

PATIENT
  Age: 26 Year
  Sex: Male
  Weight: 66.22 kg

DRUGS (2)
  1. EFFEXOR XR [Suspect]
     Active Substance: VENLAFAXINE HYDROCHLORIDE
     Indication: ANXIETY
     Dosage: 37.5 MG, UNK
     Route: 048
  2. EFFEXOR XR [Suspect]
     Active Substance: VENLAFAXINE HYDROCHLORIDE
     Indication: PERIPHERAL SWELLING
     Dosage: 75 MG, 1X/DAY (75 MG A DAY FOR ANOTHER WEEK )

REACTIONS (9)
  - Dizziness [Unknown]
  - Depression [Unknown]
  - Pain [Unknown]
  - Vertigo [Unknown]
  - Nausea [Unknown]
  - Fatigue [Unknown]
  - Tremor [Unknown]
  - Headache [Unknown]
  - Confusional state [Unknown]
